FAERS Safety Report 20671989 (Version 1)
Quarter: 2022Q2

REPORT INFORMATION
  Report Type: Spontaneous
  Country: SA (occurrence: SA)
  Receive Date: 20220405
  Receipt Date: 20220405
  Transmission Date: 20220721
  Serious: Yes (Other)
  Sender: FDA-Public Use
  Company Number: SA-SUN PHARMACEUTICAL INDUSTRIES LTD-2022RR-331702

PATIENT
  Age: 38 Year
  Sex: Male

DRUGS (1)
  1. TADALAFIL [Suspect]
     Active Substance: TADALAFIL
     Indication: Sexual dysfunction
     Dosage: UNK
     Route: 048

REACTIONS (2)
  - Chorioretinopathy [Recovered/Resolved]
  - Incorrect product formulation administered [Unknown]
